FAERS Safety Report 10350541 (Version 3)
Quarter: 2014Q3

REPORT INFORMATION
  Report Type: Spontaneous
  Country: US (occurrence: US)
  Receive Date: 20140730
  Receipt Date: 20140818
  Transmission Date: 20150326
  Serious: Yes (Hospitalization)
  Sender: FDA-Public Use
  Company Number: US-B.I. PHARMACEUTICALS,INC./RIDGEFIELD-2014-BI-34232BP

PATIENT
  Age: 68 Year
  Sex: Male
  Weight: 64 kg

DRUGS (32)
  1. VITAMIN C [Concomitant]
     Active Substance: ASCORBIC ACID
     Dosage: 1500 MG
     Route: 065
  2. AMLODIPINE [Concomitant]
     Active Substance: AMLODIPINE BESYLATE
     Route: 065
  3. CYCLOBENZAPRINE HCL [Concomitant]
     Active Substance: CYCLOBENZAPRINE HYDROCHLORIDE
     Dosage: 20 MG
     Route: 048
     Dates: start: 2009
  4. PROAIR HFA [Concomitant]
     Active Substance: ALBUTEROL SULFATE
     Route: 065
  5. DICLOFENAC SODIUM. [Concomitant]
     Active Substance: DICLOFENAC SODIUM
     Dosage: 100 MG
     Route: 048
     Dates: start: 2011
  6. OXYGEN. [Concomitant]
     Active Substance: OXYGEN
     Dosage: ROUTE: NASAL; STRENGTH: 2 LITERS AS DIRECTED
     Route: 050
  7. ZOSTAVAX [Concomitant]
     Active Substance: VARICELLA-ZOSTER VIRUS STRAIN OKA/MERCK LIVE ANTIGEN
     Dosage: FORMULATION: SOLUTION RECONSTITUTED; STRENGTH: 19400 UNT/0.65 ML
     Route: 065
  8. SYMBICORT [Concomitant]
     Active Substance: BUDESONIDE\FORMOTEROL FUMARATE DIHYDRATE
     Dosage: 4 PUF
     Route: 065
  9. LEXAPRO [Concomitant]
     Active Substance: ESCITALOPRAM OXALATE
     Dosage: 0.5 ANZ
     Route: 065
  10. SIMVASTATIN. [Concomitant]
     Active Substance: SIMVASTATIN
     Dosage: 20 MG
     Route: 048
  11. CENTRAVITES [Concomitant]
     Route: 065
  12. SPIRIVA [Suspect]
     Active Substance: TIOTROPIUM BROMIDE MONOHYDRATE
     Indication: ASTHMA
     Dosage: 18 MCG
     Route: 055
     Dates: start: 2009
  13. MULTIVITAMINS THERAGRAN [Concomitant]
     Indication: VITAMIN SUPPLEMENTATION
     Dosage: 1 ANZ
     Route: 048
  14. MIRALAX [Concomitant]
     Active Substance: POLYETHYLENE GLYCOL 3350
     Route: 065
  15. TYLENOL [Concomitant]
     Active Substance: ACETAMINOPHEN
     Indication: PAIN
     Dosage: 3900 MG
     Route: 065
  16. LISINOPRIL. [Concomitant]
     Active Substance: LISINOPRIL
     Dosage: 10 MG
     Route: 065
  17. ASPIRIN. [Concomitant]
     Active Substance: ASPIRIN
     Indication: CARDIAC DISORDER
     Dosage: 81 MG
     Route: 048
     Dates: start: 2009
  18. ASPIRIN. [Concomitant]
     Active Substance: ASPIRIN
     Dosage: 81 MG
     Route: 048
  19. KEPPRA [Concomitant]
     Active Substance: LEVETIRACETAM
     Dosage: 1000 MG
     Route: 048
     Dates: start: 2009
  20. FISH OIL [Concomitant]
     Active Substance: FISH OIL
     Dosage: 600 MG
     Route: 065
  21. MIRALAX [Concomitant]
     Active Substance: POLYETHYLENE GLYCOL 3350
     Indication: CONSTIPATION
     Dosage: STRENGTH AND DAILY DOSE: 17 G WITH GLASS OF FLUID
     Route: 065
  22. ZOLPIDEM TARTRATE. [Concomitant]
     Active Substance: ZOLPIDEM TARTRATE
     Indication: INSOMNIA
     Route: 048
  23. TRAZODONE [Concomitant]
     Active Substance: TRAZODONE HYDROCHLORIDE
     Dosage: 50 MG
     Route: 065
  24. FISH OIL [Concomitant]
     Active Substance: FISH OIL
     Indication: GENERAL PHYSICAL CONDITION
     Dosage: 1000 MG
     Route: 048
  25. SINGULAIR [Concomitant]
     Active Substance: MONTELUKAST SODIUM
     Dosage: 10 MG
     Route: 048
     Dates: start: 2009
  26. FERROUS SULFATE [Concomitant]
     Active Substance: FERROUS SULFATE\FERROUS SULFATE, DRIED
     Dosage: 975 MG
     Route: 065
  27. FOLIC ACID. [Concomitant]
     Active Substance: FOLIC ACID
     Dosage: 1 MG
     Route: 065
  28. COLACE [Concomitant]
     Active Substance: DOCUSATE SODIUM
     Dosage: 200 MG
     Route: 065
  29. SCOT-TUSSIN SUGAR-FREE [Concomitant]
     Dosage: FORMULATION: LIQUID; DOSAGE: 5 APPLICATION
     Route: 065
  30. CALCIUM 600 PLUS D [Concomitant]
     Indication: MINERAL SUPPLEMENTATION
     Dosage: 1 ANZ
     Route: 048
     Dates: start: 2009
  31. VITAMIN C [Concomitant]
     Active Substance: ASCORBIC ACID
     Route: 065
  32. VISION FORMULA [Concomitant]
     Route: 065

REACTIONS (11)
  - Rectal haemorrhage [Not Recovered/Not Resolved]
  - Myalgia [Unknown]
  - Product quality issue [Unknown]
  - Rectal haemorrhage [Unknown]
  - Penile haemorrhage [Not Recovered/Not Resolved]
  - Chest pain [Unknown]
  - Abnormal loss of weight [Not Recovered/Not Resolved]
  - Off label use [Unknown]
  - Renal failure chronic [Unknown]
  - Colitis ischaemic [Unknown]
  - Arthralgia [Unknown]

NARRATIVE: CASE EVENT DATE: 2009
